FAERS Safety Report 23979670 (Version 2)
Quarter: 2024Q4

REPORT INFORMATION
  Report Type: Report from Study
  Country: CA (occurrence: CA)
  Receive Date: 20240616
  Receipt Date: 20241024
  Transmission Date: 20250115
  Serious: Yes (Hospitalization, Other)
  Sender: JOHNSON AND JOHNSON
  Company Number: CA-JNJFOC-20230841936

PATIENT
  Sex: Male

DRUGS (1)
  1. STELARA [Suspect]
     Active Substance: USTEKINUMAB
     Indication: Psoriasis
     Route: 058
     Dates: start: 20201117

REACTIONS (4)
  - Stem cell transplant [Unknown]
  - Lymphoma [Unknown]
  - Psoriasis [Unknown]
  - Muscular weakness [Unknown]
